FAERS Safety Report 22766984 (Version 6)
Quarter: 2024Q1

REPORT INFORMATION
  Report Type: Spontaneous
  Country: IN (occurrence: IN)
  Receive Date: 20230731
  Receipt Date: 20240111
  Transmission Date: 20240410
  Serious: Yes (Other)
  Sender: FDA-Public Use
  Company Number: IN-PFIZER INC-PV202300130361

PATIENT
  Age: 63 Year
  Sex: Female

DRUGS (3)
  1. LORLATINIB [Suspect]
     Active Substance: LORLATINIB
     Dosage: 100 MG, ALTERNATE DAY
     Route: 048
  2. LORLATINIB [Suspect]
     Active Substance: LORLATINIB
     Dosage: 100 MG, 1X/DAY
     Route: 048
  3. LORLATINIB [Suspect]
     Active Substance: LORLATINIB
     Dosage: 100 MG, ALTERNATE DAY
     Route: 048

REACTIONS (8)
  - Hallucination [Unknown]
  - Cognitive disorder [Unknown]
  - Mental disorder [Unknown]
  - Abnormal behaviour [Unknown]
  - Crying [Unknown]
  - Discomfort [Unknown]
  - Feeling hot [Unknown]
  - Off label use [Unknown]
